FAERS Safety Report 5765241-X (Version None)
Quarter: 2008Q2

REPORT INFORMATION
  Report Type: 
  Country: None (occurrence: None)
  Receive Date: 20080611
  Receipt Date: 20080226
  Transmission Date: 20081010
  Serious: No
  Sender: FDA-Public Use
  Company Number: 08H-163-0313949-00

PATIENT
  Age: 33 Year
  Sex: Female
  Weight: 61.2356 kg

DRUGS (4)
  1. HEPARIN SODIUM [Suspect]
     Indication: DRUG USE FOR UNKNOWN INDICATION
  2. PRENATAL VITAMINS (PRENATAL VITAMINS /01549301/) [Concomitant]
  3. FOLIC ACID [Concomitant]
  4. IRON (IRON) [Concomitant]

REACTIONS (2)
  - HYPERSENSITIVITY [None]
  - INJECTION SITE IRRITATION [None]
